FAERS Safety Report 11791770 (Version 1)
Quarter: 2015Q4

REPORT INFORMATION
  Report Type: Report from Study
  Country: AR (occurrence: AR)
  Receive Date: 20151201
  Receipt Date: 20151201
  Transmission Date: 20160305
  Serious: Yes (Other)
  Sender: FDA-Public Use
  Company Number: PHHY2015AR123079

PATIENT
  Sex: Female

DRUGS (6)
  1. TRILEPTAL [Suspect]
     Active Substance: OXCARBAZEPINE
     Dosage: 300 MG, QD (IN THE AFTERNOON)
     Route: 065
  2. TRILEPTAL [Suspect]
     Active Substance: OXCARBAZEPINE
     Dosage: 600 MG INDICATED (1/2 AT NIGHT FOR 1WEEK, NEXT WEEK WOULD ADD ANOTHER 1/2 IN MORNING)
     Route: 065
  3. TRILEPTAL [Suspect]
     Active Substance: OXCARBAZEPINE
     Dosage: 450 MG, (150 MG IN THE MORNING AND 300 MG IN THE AFTERNOON)
     Route: 065
  4. TRILEPTAL [Suspect]
     Active Substance: OXCARBAZEPINE
     Indication: SEIZURE
     Dosage: 300 MG, QD
     Route: 065
     Dates: start: 2008
  5. TRILEPTAL [Suspect]
     Active Substance: OXCARBAZEPINE
     Dosage: 300 MG, UNK
     Route: 065
  6. TRILEPTAL [Suspect]
     Active Substance: OXCARBAZEPINE
     Dosage: 600 MG, UNK
     Route: 065

REACTIONS (6)
  - Seizure [Recovered/Resolved]
  - Fatigue [Recovered/Resolved]
  - Postpartum stress disorder [Recovered/Resolved]
  - Foetal malposition [Unknown]
  - Maternal exposure during pregnancy [Unknown]
  - Somnolence [Recovered/Resolved]
